FAERS Safety Report 7089136-7 (Version None)
Quarter: 2010Q4

REPORT INFORMATION
  Report Type: 
  Country: None (occurrence: None)
  Receive Date: 20101108
  Receipt Date: 20101029
  Transmission Date: 20110411
  Serious: Yes (Hospitalization, Other)
  Sender: FDA-Public Use
  Company Number: FR-BRISTOL-MYERS SQUIBB COMPANY-15348584

PATIENT
  Age: 62 Year
  Sex: Female

DRUGS (22)
  1. GLUCOPHAGE [Suspect]
     Dosage: STRENGTH 1000MG.
     Route: 048
     Dates: end: 20100627
  2. CISPLATIN [Suspect]
     Dosage: INTERRUPTED AND REINTRODUCED
     Route: 040
     Dates: start: 20100614, end: 20100614
  3. MABTHERA [Suspect]
     Dosage: INTERRUPTED AND REINTRODUCED
     Route: 040
     Dates: start: 20100614, end: 20100614
  4. ARACYTINE [Suspect]
     Dosage: STRENGTH-8000MG.INTERRUPTED AND REINTRODUCED
     Dates: start: 20100614, end: 20100614
  5. NOVONORM [Suspect]
     Route: 048
     Dates: end: 20100627
  6. ACTRAPID [Concomitant]
  7. TAHOR [Concomitant]
  8. LEVOTHYROXINE SODIUM [Concomitant]
  9. XYZAL [Concomitant]
  10. CYMBALTA [Concomitant]
  11. OGASTORO [Concomitant]
  12. VERATRAN [Concomitant]
  13. CARBOSYLANE [Concomitant]
  14. DIFFU-K [Concomitant]
  15. METOCLOPRAMIDE [Concomitant]
     Indication: PREMEDICATION
  16. ONDANSETRON [Concomitant]
     Indication: PREMEDICATION
  17. FUROSEMIDE [Concomitant]
     Indication: PREMEDICATION
  18. FUNGIZONE [Concomitant]
     Indication: PREMEDICATION
  19. PARACETAMOL [Concomitant]
     Indication: PREMEDICATION
  20. LACTULOSE [Concomitant]
     Indication: PREMEDICATION
  21. PANTOPRAZOLE [Concomitant]
     Indication: PREMEDICATION
  22. ESOMEPRAZOLE MAGNESIUM [Concomitant]
     Indication: PREMEDICATION

REACTIONS (5)
  - DECREASED APPETITE [None]
  - DIARRHOEA [None]
  - RENAL FAILURE ACUTE [None]
  - THROMBOCYTOPENIA [None]
  - VOMITING [None]
